FAERS Safety Report 5082574-3 (Version None)
Quarter: 2006Q3

REPORT INFORMATION
  Report Type: 
  Country: None (occurrence: None)
  Receive Date: 20060817
  Receipt Date: 20060808
  Transmission Date: 20061208
  Serious: Yes (Hospitalization)
  Sender: FDA-Public Use
  Company Number: US-BRISTOL-MYERS SQUIBB COMPANY-13470737

PATIENT
  Age: 83 Year
  Sex: Female

DRUGS (2)
  1. PRAVACHOL [Suspect]
  2. PLAVIX [Suspect]

REACTIONS (2)
  - HAEMORRHAGE [None]
  - MUSCLE SPASMS [None]
